FAERS Safety Report 6252043-3 (Version None)
Quarter: 2009Q2

REPORT INFORMATION
  Report Type: 
  Country: None (occurrence: None)
  Receive Date: 20090630
  Receipt Date: 20070328
  Transmission Date: 20091009
  Serious: Yes (Hospitalization)
  Sender: FDA-Public Use
  Company Number: US-ROCHE-638665

PATIENT
  Sex: Male

DRUGS (15)
  1. ENFUVIRTIDE [Suspect]
     Indication: HIV INFECTION
     Route: 065
     Dates: start: 20030618, end: 20070328
  2. ACYCLOVIR [Concomitant]
     Dosage: FREQ: QD
     Dates: start: 20070322, end: 20080205
  3. ZITHROMAX [Concomitant]
     Dosage: FREQ: QD
     Dates: start: 20060101
  4. DAPSONE [Concomitant]
     Dosage: FREQ: QD
     Dates: start: 20060101, end: 20080205
  5. CLINDAMYCIN [Concomitant]
     Dates: start: 20061004, end: 20061024
  6. CLINDAMYCIN [Concomitant]
     Dates: start: 20061117, end: 20061127
  7. CIPRO [Concomitant]
     Dates: start: 20061117, end: 20061127
  8. FLUCONAZOLE [Concomitant]
     Dosage: FREQ: QD
     Dates: start: 20040701, end: 20080205
  9. ZIAGEN [Concomitant]
     Dates: start: 20051104, end: 20080205
  10. TRUVADA [Concomitant]
     Dosage: FREQ: QD
     Dates: start: 20051104, end: 20080205
  11. PREZISTA [Concomitant]
     Dates: start: 20051104, end: 20080205
  12. NORVIR [Concomitant]
     Dates: start: 20051103, end: 20080205
  13. VIREAD [Concomitant]
     Dosage: FREQ: QD
     Dates: start: 20031201, end: 20051103
  14. LEXIVA [Concomitant]
     Dates: start: 20031206, end: 20050901
  15. EPIVIR [Concomitant]
     Dates: start: 19980901, end: 20051102

REACTIONS (1)
  - HODGKIN'S DISEASE [None]
